FAERS Safety Report 8111463-2 (Version None)
Quarter: 2012Q1

REPORT INFORMATION
  Report Type: 
  Country: None (occurrence: None)
  Receive Date: 20120203
  Receipt Date: 20120124
  Transmission Date: 20120608
  Serious: Yes (Death)
  Sender: FDA-Public Use
  Company Number: US-JNJFOC-20120110778

PATIENT
  Sex: Male
  Weight: 53.52 kg

DRUGS (1)
  1. REMICADE [Suspect]
     Indication: RHEUMATOID ARTHRITIS
     Route: 042

REACTIONS (4)
  - DIABETES MELLITUS [None]
  - GENERAL PHYSICAL HEALTH DETERIORATION [None]
  - LUNG NEOPLASM MALIGNANT [None]
  - CARDIAC DISORDER [None]
